FAERS Safety Report 7041551 (Version 2)
Quarter: 2013Q3

REPORT INFORMATION
  Report Type: Spontaneous
  Country: US (occurrence: US)
  Receive Date: 20090706
  Receipt Date: 20130801
  Transmission Date: 20140515
  Serious: Yes (Hospitalization, Other)
  Sender: FDA-Public Use
  Company Number: US-BIOGENIDEC-2009BI012042

PATIENT
  Age: 53 Year
  Sex: Male
  Weight: 56 kg

DRUGS (3)
  1. AVONEX [Suspect]
     Indication: MULTIPLE SCLEROSIS
     Route: 030
     Dates: start: 20090418, end: 20090516
  2. METFORMIN [Concomitant]
     Route: 048
  3. BUFFERIN [Concomitant]
     Indication: PROPHYLAXIS
     Route: 048

REACTIONS (16)
  - Transient ischaemic attack [Recovered/Resolved]
  - Lacunar infarction [Recovered/Resolved]
  - Dysarthria [Recovered/Resolved]
  - Hemiparesis [Recovered/Resolved]
  - Paraparesis [Recovered/Resolved]
  - Mitral valve disease [Unknown]
  - Palpitations [Recovered/Resolved]
  - Blood glucose increased [Recovered/Resolved]
  - Fall [Recovered/Resolved]
  - Contusion [Not Recovered/Not Resolved]
  - Heart valve incompetence [Unknown]
  - Cataract operation [Recovered/Resolved]
  - Weight decreased [Not Recovered/Not Resolved]
  - Procedural complication [Recovered/Resolved]
  - Scratch [Recovered/Resolved]
  - Injection site erythema [Recovered/Resolved]
